FAERS Safety Report 4861015-2 (Version None)
Quarter: 2005Q4

REPORT INFORMATION
  Report Type: 
  Country: None (occurrence: None)
  Receive Date: 20051220
  Receipt Date: 20051019
  Transmission Date: 20060501
  Serious: No
  Sender: FDA-Public Use
  Company Number: US-GLAXOSMITHKLINE-A0578740A

PATIENT
  Age: 60 Year
  Sex: Male

DRUGS (4)
  1. TAGAMET [Suspect]
     Indication: INNER EAR DISORDER
     Route: 048
     Dates: start: 19930101
  2. LIBRIUM [Concomitant]
  3. ANTIVERT [Concomitant]
  4. ASPIRIN [Concomitant]

REACTIONS (2)
  - BLOOD CORTISOL INCREASED [None]
  - BLOOD THYROID STIMULATING HORMONE INCREASED [None]
